FAERS Safety Report 7192422-3 (Version None)
Quarter: 2010Q4

REPORT INFORMATION
  Report Type: 
  Country: None (occurrence: None)
  Receive Date: 20101223
  Receipt Date: 20101213
  Transmission Date: 20110411
  Serious: Yes (Other)
  Sender: FDA-Public Use
  Company Number: US-BAYER-2010-005046

PATIENT
  Sex: Male

DRUGS (3)
  1. LEVITRA [Suspect]
     Indication: ERECTILE DYSFUNCTION
     Dosage: UNK UNK, PRN
     Route: 048
     Dates: start: 20081201
  2. LEVITRA [Suspect]
     Dosage: 10 MG, UNK
     Route: 048
     Dates: start: 20101210
  3. LEVITRA [Suspect]
     Dosage: 60 MG, UNK
     Dates: start: 20101212

REACTIONS (4)
  - CYANOPSIA [None]
  - DRUG INEFFECTIVE [None]
  - INCORRECT DOSE ADMINISTERED [None]
  - NAUSEA [None]
